FAERS Safety Report 8378996-5 (Version None)
Quarter: 2012Q2

REPORT INFORMATION
  Report Type: 
  Country: None (occurrence: None)
  Receive Date: 20120523
  Receipt Date: 20120516
  Transmission Date: 20120825
  Serious: Yes (Other)
  Sender: FDA-Public Use
  Company Number: GB-ACCORD-013529

PATIENT
  Sex: Female

DRUGS (1)
  1. LETROZOLE [Suspect]

REACTIONS (1)
  - DYSPHAGIA [None]
